FAERS Safety Report 10281668 (Version 1)
Quarter: 2014Q3

REPORT INFORMATION
  Report Type: Spontaneous
  Country: US (occurrence: US)
  Receive Date: 20140707
  Receipt Date: 20140707
  Transmission Date: 20150326
  Serious: No
  Sender: FDA-Public Use
  Company Number: US-PFIZER INC-2014183073

PATIENT
  Age: 44 Year
  Sex: Male

DRUGS (16)
  1. TRAZODONE [Concomitant]
     Active Substance: TRAZODONE HYDROCHLORIDE
     Dosage: UNK
  2. LYRICA [Suspect]
     Active Substance: PREGABALIN
     Indication: FIBROMYALGIA
     Dosage: 75 MG, 2X/DAY
     Route: 048
     Dates: end: 20140321
  3. TRAZODONE HYDROCHLORIDE. [Concomitant]
     Active Substance: TRAZODONE HYDROCHLORIDE
     Dosage: 50 MG, UNK
     Route: 048
     Dates: end: 20140321
  4. DULOXETINE HYDROCHLORIDE. [Concomitant]
     Active Substance: DULOXETINE HYDROCHLORIDE
     Dosage: 30 MG, DAILY
     Route: 048
     Dates: end: 20140321
  5. DICLOFENAC SODIUM. [Concomitant]
     Active Substance: DICLOFENAC SODIUM
     Dosage: 75 MG, DAILY
     Route: 048
     Dates: end: 20140321
  6. CELEBREX [Concomitant]
     Active Substance: CELECOXIB
     Dosage: 200 MG, AS NEEDED
     Route: 048
     Dates: end: 20140321
  7. FLEXERIL [Concomitant]
     Active Substance: CYCLOBENZAPRINE HYDROCHLORIDE
     Dosage: 10 MG, UNK
     Route: 048
     Dates: end: 20140321
  8. FELDENE [Concomitant]
     Active Substance: PIROXICAM
     Dosage: 20 MG, DAILY
     Route: 048
     Dates: end: 20140321
  9. ALEVE [Concomitant]
     Active Substance: NAPROXEN SODIUM
     Dosage: 220 MG, UNK
     Route: 048
     Dates: end: 20140321
  10. ETODOLAC. [Concomitant]
     Active Substance: ETODOLAC
     Dosage: 500 MG, UNK
     Route: 048
     Dates: end: 20140321
  11. ZYRTEC [Concomitant]
     Active Substance: CETIRIZINE HYDROCHLORIDE
     Dosage: UNK
  12. TRAMADOL [Concomitant]
     Active Substance: TRAMADOL
     Dosage: UNK
  13. SULINDAC. [Concomitant]
     Active Substance: SULINDAC
     Dosage: 200 MG, UNK
     Route: 048
     Dates: end: 20140321
  14. ADVIL [Concomitant]
     Active Substance: IBUPROFEN
     Dosage: 200 MG, UNK
     Route: 048
     Dates: end: 20140321
  15. SAVELLA [Concomitant]
     Active Substance: MILNACIPRAN HYDROCHLORIDE
     Dosage: 25 MG, UNK
     Route: 048
     Dates: end: 20140321
  16. MEDROL PAK [Concomitant]
     Dosage: 4 MG, UNK
     Route: 048
     Dates: end: 20140321

REACTIONS (8)
  - Back pain [Unknown]
  - Diarrhoea [Unknown]
  - Drug effect incomplete [Unknown]
  - Myalgia [Unknown]
  - Musculoskeletal stiffness [Unknown]
  - Arthralgia [Unknown]
  - Neck pain [Unknown]
  - Pain in extremity [Unknown]
